FAERS Safety Report 25144410 (Version 1)
Quarter: 2025Q2

REPORT INFORMATION
  Report Type: Spontaneous
  Country: US (occurrence: US)
  Receive Date: 20250401
  Receipt Date: 20250401
  Transmission Date: 20250717
  Serious: Yes (Other)
  Sender: MYLAN
  Company Number: US-MYLANLABS-2025M1026050

PATIENT
  Age: 64 Year
  Sex: Male

DRUGS (2)
  1. PREDNISONE [Suspect]
     Active Substance: PREDNISONE
     Indication: Pericarditis constrictive
  2. PREDNISONE [Suspect]
     Active Substance: PREDNISONE

REACTIONS (2)
  - Pericarditis [Recovering/Resolving]
  - Rebound effect [Recovering/Resolving]
